FAERS Safety Report 13076358 (Version 2)
Quarter: 2017Q1

REPORT INFORMATION
  Report Type: Report from Study
  Country: CA (occurrence: CA)
  Receive Date: 20161230
  Receipt Date: 20170113
  Transmission Date: 20170428
  Serious: Yes (Hospitalization)
  Sender: FDA-Public Use
  Company Number: CA-JNJFOC-20161218980

PATIENT
  Age: 56 Year
  Sex: Female

DRUGS (14)
  1. EURO FOLIC [Concomitant]
     Route: 065
  2. TEVA ROSUVASTATIN [Concomitant]
     Indication: BLOOD CHOLESTEROL
     Route: 065
  3. PMS-METOPROLOL-L [Concomitant]
     Indication: BLOOD PRESSURE MEASUREMENT
     Route: 065
  4. MAR-PANTOPRAZOLE [Concomitant]
     Indication: GASTRIC DISORDER
     Route: 065
  5. ASAPHEN [Concomitant]
     Active Substance: ASPIRIN
     Indication: BLOOD DISORDER
     Route: 065
  6. PMS-SENNOSIDES [Concomitant]
     Dosage: ONCE IN A DAY AS NECESSARY
     Route: 065
  7. CAL OS D [Concomitant]
     Route: 065
  8. NOVOLIN GE NPH [Concomitant]
     Active Substance: INSULIN BEEF
     Route: 058
  9. PMS-DOCUSATE SODIUM [Concomitant]
     Route: 065
  10. KOMBOGLYZE [Concomitant]
     Active Substance: METFORMIN HYDROCHLORIDE\SAXAGLIPTIN
     Route: 065
  11. RAMIPRIL HCTZ [Concomitant]
     Indication: BLOOD PRESSURE ABNORMAL
     Route: 065
  12. DIAMICRON [Concomitant]
     Active Substance: GLICLAZIDE
     Route: 065
  13. STELARA [Suspect]
     Active Substance: USTEKINUMAB
     Indication: PSORIATIC ARTHROPATHY
     Route: 058
     Dates: start: 20140304
  14. PMS-METOPROLOL-L [Concomitant]
     Indication: CARDIAC DISORDER
     Route: 065

REACTIONS (4)
  - Silent myocardial infarction [Unknown]
  - Incorrect product storage [Unknown]
  - Lower respiratory tract infection bacterial [Unknown]
  - Urinary tract infection [Unknown]

NARRATIVE: CASE EVENT DATE: 201612
